FAERS Safety Report 5672754-8 (Version None)
Quarter: 2008Q1

REPORT INFORMATION
  Report Type: 
  Country: None (occurrence: None)
  Receive Date: 20080319
  Receipt Date: 20070725
  Transmission Date: 20080703
  Serious: No
  Sender: FDA-Public Use
  Company Number: US-KINGPHARMUSA00001-K200700936

PATIENT

DRUGS (1)
  1. ALTACE [Suspect]
     Indication: HYPERTENSION

REACTIONS (3)
  - ERECTILE DYSFUNCTION [None]
  - FATIGUE [None]
  - SEXUAL DYSFUNCTION [None]
